FAERS Safety Report 26106107 (Version 1)
Quarter: 2025Q4

REPORT INFORMATION
  Report Type: Spontaneous
  Country: GE (occurrence: GE)
  Receive Date: 20251201
  Receipt Date: 20251201
  Transmission Date: 20260118
  Serious: Yes (Other)
  Sender: ROCHE
  Company Number: GE-ROCHE-10000444615

PATIENT
  Age: 65 Year

DRUGS (2)
  1. TECENTRIQ [Suspect]
     Active Substance: ATEZOLIZUMAB
     Indication: Lung neoplasm malignant
     Route: 065
  2. AVASTIN [Suspect]
     Active Substance: BEVACIZUMAB
     Indication: Lung neoplasm malignant
     Route: 065

REACTIONS (5)
  - Asthenia [Unknown]
  - Leukopenia [Unknown]
  - Blood pressure decreased [Unknown]
  - Decreased appetite [Unknown]
  - Loss of consciousness [Unknown]
